FAERS Safety Report 16205213 (Version 1)
Quarter: 2019Q2

REPORT INFORMATION
  Report Type: Report from Study
  Country: None (occurrence: CO)
  Receive Date: 20190416
  Receipt Date: 20190416
  Transmission Date: 20190711
  Serious: Yes (Other)
  Sender: FDA-Public Use
  Company Number: CO-ABBVIE-18K-036-2515858-00

PATIENT
  Sex: Female

DRUGS (2)
  1. HUMIRA [Suspect]
     Active Substance: ADALIMUMAB
     Indication: PSORIASIS
     Route: 058
     Dates: end: 20180924
  2. HUMIRA [Suspect]
     Active Substance: ADALIMUMAB
     Indication: PSORIASIS
     Route: 058
     Dates: start: 20160310, end: 20190220

REACTIONS (4)
  - Cervix inflammation [Unknown]
  - Cytology abnormal [Unknown]
  - Colonoscopy abnormal [Unknown]
  - Biopsy site unspecified abnormal [Unknown]

NARRATIVE: CASE EVENT DATE: 2018
